FAERS Safety Report 25629451 (Version 1)
Quarter: 2025Q3

REPORT INFORMATION
  Report Type: Spontaneous
  Country: US (occurrence: US)
  Receive Date: 20250731
  Receipt Date: 20250731
  Transmission Date: 20251020
  Serious: Yes (Other)
  Sender: Day One Biopharmaceuticals
  Company Number: US-Day One Biopharmaceuticals Inc.-2025US001168

PATIENT

DRUGS (1)
  1. TOVORAFENIB [Suspect]
     Active Substance: TOVORAFENIB
     Indication: Ganglioglioma
     Dosage: 400 MG, QW
     Route: 065

REACTIONS (2)
  - Metastases to meninges [Unknown]
  - Off label use [Unknown]
